FAERS Safety Report 5265872-X (Version None)
Quarter: 2007Q1

REPORT INFORMATION
  Report Type: 
  Country: None (occurrence: None)
  Receive Date: 20070312
  Receipt Date: 20070312
  Transmission Date: 20070707
  Serious: No
  Sender: FDA-Public Use
  Company Number: None

PATIENT
  Age: 77 Year
  Sex: Male
  Weight: 58.9676 kg

DRUGS (1)
  1. DEPO-MEDROL [Suspect]
     Indication: INTERVERTEBRAL DISC OPERATION
     Dosage: 40MG.
     Dates: start: 20050126, end: 20050126

REACTIONS (9)
  - ARACHNOIDITIS [None]
  - CRANIAL NEUROPATHY [None]
  - FORMICATION [None]
  - HYPOAESTHESIA [None]
  - MUSCLE SPASMS [None]
  - MUSCULAR WEAKNESS [None]
  - PARAESTHESIA [None]
  - PHARMACEUTICAL PRODUCT COMPLAINT [None]
  - SENSORY DISTURBANCE [None]
